FAERS Safety Report 4315266-6 (Version None)
Quarter: 2004Q1

REPORT INFORMATION
  Report Type: 
  Country: None (occurrence: None)
  Receive Date: 20040309
  Receipt Date: 20040219
  Transmission Date: 20041129
  Serious: Yes (Life-Threatening)
  Sender: FDA-Public Use
  Company Number: JP_040202676

PATIENT
  Age: 52 Year
  Sex: Female

DRUGS (3)
  1. VANCOMYCIN [Suspect]
     Indication: STAPHYLOCOCCAL INFECTION
     Dates: start: 20040202, end: 20040208
  2. TARGOCID [Concomitant]
  3. CARBENIN [Concomitant]

REACTIONS (4)
  - CONDITION AGGRAVATED [None]
  - LIVER DISORDER [None]
  - RASH [None]
  - RENAL DISORDER [None]
